FAERS Safety Report 5003573-3 (Version None)
Quarter: 2006Q2

REPORT INFORMATION
  Report Type: 
  Country: None (occurrence: None)
  Receive Date: 20060511
  Receipt Date: 20060428
  Transmission Date: 20061013
  Serious: Yes (Life-Threatening)
  Sender: FDA-Public Use
  Company Number: 230026M06GBR

PATIENT
  Age: 41 Year
  Sex: Female

DRUGS (5)
  1. REBIF [Suspect]
     Indication: MULTIPLE SCLEROSIS
     Dosage: 44 MCG,  3 IN 1 WEEKS, SUBCUTANEOUS
     Route: 058
     Dates: start: 20040426
  2. CITALOPRAM HYDROBROMIDE [Concomitant]
  3. DIAZEPAM [Concomitant]
  4. GABAPENTIN [Concomitant]
  5. FOLIC ACID [Concomitant]

REACTIONS (1)
  - SUICIDAL BEHAVIOUR [None]
